FAERS Safety Report 12381962 (Version 2)
Quarter: 2016Q2

REPORT INFORMATION
  Report Type: Report from Study
  Country: US (occurrence: US)
  Receive Date: 20160518
  Receipt Date: 20160602
  Transmission Date: 20160815
  Serious: Yes (Death, Hospitalization, Other)
  Sender: FDA-Public Use
  Company Number: US-GILEAD-2016-0213645

PATIENT
  Age: 71 Year
  Sex: Male

DRUGS (11)
  1. SERTRALINE [Concomitant]
     Active Substance: SERTRALINE HYDROCHLORIDE
  2. BABY ASPIRIN [Concomitant]
     Active Substance: ASPIRIN
  3. BACLOFEN. [Concomitant]
     Active Substance: BACLOFEN
  4. PREGABALIN. [Concomitant]
     Active Substance: PREGABALIN
  5. CALCIUM [Concomitant]
     Active Substance: CALCIUM
  6. AMBRISENTAN [Suspect]
     Active Substance: AMBRISENTAN
     Indication: PULMONARY HYPERTENSION
     Dosage: 5 MG, QD
     Route: 065
     Dates: start: 20141010, end: 20160521
  7. SIMVASTATIN. [Concomitant]
     Active Substance: SIMVASTATIN
  8. MIRTAZAPINE. [Concomitant]
     Active Substance: MIRTAZAPINE
  9. VITAMIN D3 [Concomitant]
     Active Substance: CHOLECALCIFEROL
  10. LUMIGAN [Concomitant]
     Active Substance: BIMATOPROST
  11. FORTEO [Concomitant]
     Active Substance: TERIPARATIDE

REACTIONS (3)
  - Disease progression [Fatal]
  - Unevaluable event [Unknown]
  - Pneumonia [Not Recovered/Not Resolved]

NARRATIVE: CASE EVENT DATE: 20160521
